FAERS Safety Report 20506668 (Version 1)
Quarter: 2022Q1

REPORT INFORMATION
  Report Type: Spontaneous
  Country: US (occurrence: None)
  Receive Date: 20220222
  Receipt Date: 20220222
  Transmission Date: 20220423
  Serious: Yes (Disabling, Other)
  Sender: FDA-Public Use
  Company Number: None

PATIENT
  Sex: Female

DRUGS (1)
  1. AKLIEF [Suspect]
     Active Substance: TRIFAROTENE
     Indication: Acne
     Dosage: FREQUENCY : AT BEDTIME;?
     Route: 061
     Dates: start: 20211218, end: 20220221

REACTIONS (4)
  - Throat tightness [None]
  - Dyspepsia [None]
  - Abdominal pain upper [None]
  - Sensation of foreign body [None]

NARRATIVE: CASE EVENT DATE: 20220209
